FAERS Safety Report 20024247 (Version 1)
Quarter: 2021Q4

REPORT INFORMATION
  Report Type: Spontaneous
  Country: US (occurrence: US)
  Receive Date: 20211102
  Receipt Date: 20211102
  Transmission Date: 20220303
  Serious: No
  Sender: FDA-Public Use
  Company Number: US-GW PHARMA-202110USGW05259

PATIENT

DRUGS (1)
  1. EPIDIOLEX [Suspect]
     Active Substance: CANNABIDIOL
     Indication: Epilepsy
     Dosage: 28.13 MG/KG/DAY, 225 MILLIGRAM, BID, ADDITIONAL 160 MG EVERY 1-2 HOURS AS NEEDED
     Route: 048
     Dates: start: 201812

REACTIONS (3)
  - Nausea [Unknown]
  - Vomiting [Unknown]
  - Prescribed overdose [Unknown]
